FAERS Safety Report 6449128-5 (Version None)
Quarter: 2009Q4

REPORT INFORMATION
  Report Type: 
  Country: None (occurrence: None)
  Receive Date: 20091119
  Receipt Date: 20091119
  Transmission Date: 20100525
  Serious: Yes (Life-Threatening, Hospitalization)
  Sender: FDA-Public Use
  Company Number: None

PATIENT
  Age: 9 Year
  Sex: Female
  Weight: 44.2 kg

DRUGS (1)
  1. RITUXIMAB 375 MG/M2 [Suspect]
     Indication: ACUTE LYMPHOCYTIC LEUKAEMIA
     Dosage: 375 MG/M2 ONCE @ 113 ML/HR OVER 4 HOURS IV
     Route: 042
     Dates: start: 20091001, end: 20091002

REACTIONS (3)
  - DERMATITIS BULLOUS [None]
  - MYELITIS TRANSVERSE [None]
  - PARAPARESIS [None]
